FAERS Safety Report 7281594-8 (Version None)
Quarter: 2011Q1

REPORT INFORMATION
  Report Type: 
  Country: None (occurrence: None)
  Receive Date: 20110208
  Receipt Date: 20110128
  Transmission Date: 20110831
  Serious: Yes (Hospitalization, Other)
  Sender: FDA-Public Use
  Company Number: PHHY2010NL90297

PATIENT
  Sex: Male

DRUGS (3)
  1. ZOMETA [Suspect]
     Dosage: 4 MG/5ML 1X PER 28 DAYS
     Dates: start: 20101215
  2. ZOMETA [Suspect]
     Dosage: 4 MG/5ML 1X PER 28 DAYS
     Dates: start: 20101115
  3. ZOMETA [Suspect]
     Indication: PROSTATE CANCER METASTATIC
     Dosage: 4 MG/5ML 1X PER 28 DAYS
     Dates: start: 20090102

REACTIONS (4)
  - MONOPLEGIA [None]
  - HAEMOGLOBIN DECREASED [None]
  - GENERAL PHYSICAL CONDITION ABNORMAL [None]
  - METASTASES TO BONE [None]
